FAERS Safety Report 19973302 (Version 1)
Quarter: 2021Q4

REPORT INFORMATION
  Report Type: Spontaneous
  Country: US (occurrence: US)
  Receive Date: 20211019
  Receipt Date: 20211019
  Transmission Date: 20220303
  Serious: Yes (Life-Threatening, Hospitalization, Congenital Anomaly)
  Sender: FDA-Public Use
  Company Number: None

PATIENT
  Sex: Female
  Weight: 4.05 kg

DRUGS (1)
  1. REGEN-COV [Suspect]
     Active Substance: CASIRIVIMAB\IMDEVIMAB
     Indication: COVID-19
     Route: 042
     Dates: start: 20210930, end: 20210930

REACTIONS (6)
  - Exposure during pregnancy [None]
  - Large for dates baby [None]
  - Lung disorder [None]
  - Renal disorder [None]
  - Congenital cystic lung [None]
  - Foetal disorder [None]

NARRATIVE: CASE EVENT DATE: 20211015
